FAERS Safety Report 6059822-6 (Version None)
Quarter: 2009Q1

REPORT INFORMATION
  Report Type: 
  Country: None (occurrence: None)
  Receive Date: 20090130
  Receipt Date: 20081007
  Transmission Date: 20090719
  Serious: No
  Sender: FDA-Public Use
  Company Number: US-ABBOTT-08P-163-0480359-00

PATIENT
  Sex: Male

DRUGS (3)
  1. LUPRON DEPOT [Suspect]
     Indication: PROSTATIC SPECIFIC ANTIGEN INCREASED
     Route: 050
     Dates: start: 20080901
  2. VICODIN [Suspect]
     Indication: PAIN
     Route: 048
     Dates: start: 20081006, end: 20081007
  3. VICODIN [Suspect]
     Indication: PELVIC PAIN

REACTIONS (3)
  - PAIN [None]
  - PELVIC PAIN [None]
  - VOMITING [None]
